FAERS Safety Report 10286826 (Version 1)
Quarter: 2014Q3

REPORT INFORMATION
  Report Type: Spontaneous
  Country: US (occurrence: US)
  Receive Date: 20140709
  Receipt Date: 20140709
  Transmission Date: 20150326
  Serious: No
  Sender: FDA-Public Use
  Company Number: US-PFIZER INC-2014176515

PATIENT
  Age: 59 Year
  Sex: Male

DRUGS (3)
  1. VIOXX [Concomitant]
     Active Substance: ROFECOXIB
     Dosage: UNK
  2. CELEBREX [Suspect]
     Active Substance: CELECOXIB
     Dosage: UNK
  3. DAYPRO [Concomitant]
     Active Substance: OXAPROZIN
     Dosage: UNK

REACTIONS (1)
  - Depressed mood [Unknown]
